FAERS Safety Report 24800559 (Version 2)
Quarter: 2025Q2

REPORT INFORMATION
  Report Type: Report from Study
  Country: GB (occurrence: GB)
  Receive Date: 20250102
  Receipt Date: 20250521
  Transmission Date: 20250717
  Serious: Yes (Hospitalization)
  Sender: SAMSUNG BIOEPIS
  Company Number: GB-SAMSUNG BIOEPIS-SB-2024-39623

PATIENT
  Age: 50 Year
  Sex: Female

DRUGS (1)
  1. IMRALDI [Suspect]
     Active Substance: ADALIMUMAB
     Indication: Psoriatic arthropathy
     Dosage: 40 MG/0.8 ML;
     Route: 058
     Dates: start: 20231213

REACTIONS (4)
  - Breast cancer [Unknown]
  - Radiation injury [Unknown]
  - Radiation skin injury [Unknown]
  - Nipple pain [Unknown]
